FAERS Safety Report 8772651 (Version 2)
Quarter: 2012Q4

REPORT INFORMATION
  Report Type: 
  Country: US (occurrence: US)
  Receive Date: 20120905
  Receipt Date: 20121003
  Transmission Date: 20130627
  Serious: Yes (Other)
  Sender: FDA-Public Use
  Company Number: US-PFIZER INC-2012214404

PATIENT
  Age: 83 Year
  Sex: Female

DRUGS (1)
  1. LIPITOR [Suspect]
     Dosage: UNK
     Dates: end: 2012

REACTIONS (3)
  - Arthritis [Unknown]
  - Myalgia [Unknown]
  - Arthralgia [Unknown]
